FAERS Safety Report 5122246-X (Version None)
Quarter: 2006Q4

REPORT INFORMATION
  Report Type: 
  Country: None (occurrence: None)
  Receive Date: 20061003
  Receipt Date: 20060925
  Transmission Date: 20070319
  Serious: Yes (Hospitalization, Other)
  Sender: FDA-Public Use
  Company Number: HQWYE049226OCT04

PATIENT
  Age: 58 Year
  Sex: Female

DRUGS (2)
  1. PREMPRO [Suspect]
  2. MEDROXYPROGESTERONE [Suspect]

REACTIONS (4)
  - BREAST CANCER METASTATIC [None]
  - LYMPHOEDEMA [None]
  - METASTASES TO LYMPH NODES [None]
  - POST PROCEDURAL COMPLICATION [None]
